FAERS Safety Report 13856223 (Version 1)
Quarter: 2017Q3

REPORT INFORMATION
  Report Type: Spontaneous
  Country: GB (occurrence: GB)
  Receive Date: 20170810
  Receipt Date: 20170810
  Transmission Date: 20171127
  Serious: Yes (Life-Threatening, Hospitalization, Other)
  Sender: FDA-Public Use
  Company Number: GB-IMPAX LABORATORIES, INC-2017-IPXL-02389

PATIENT
  Age: 21 Year
  Sex: Female

DRUGS (5)
  1. OLANZAPINE. [Suspect]
     Active Substance: OLANZAPINE
     Indication: SUICIDE ATTEMPT
     Dosage: 560 MG, 1 ONLY
     Route: 048
  2. AMLODIPINE [Suspect]
     Active Substance: AMLODIPINE BESYLATE
     Indication: SUICIDE ATTEMPT
     Dosage: 280 MG, 1 ONLY
     Route: 048
  3. ADRENACLICK [Suspect]
     Active Substance: EPINEPHRINE
     Dosage: 4 MG/KG, EVERY HOUR
     Route: 040
  4. PROPRANOLOL HYDROCHLORIDE IR [Suspect]
     Active Substance: PROPRANOLOL HYDROCHLORIDE
     Indication: SUICIDE ATTEMPT
     Dosage: 6.4 G, 1 ONLY
     Route: 048
  5. ADRENACLICK [Suspect]
     Active Substance: EPINEPHRINE
     Indication: PRODUCT USED FOR UNKNOWN INDICATION
     Dosage: 1 MG/KG, EVERY HOUR
     Route: 040

REACTIONS (8)
  - Suicide attempt [Unknown]
  - Bezoar [Recovered/Resolved]
  - Coma [Recovered/Resolved]
  - Intentional overdose [Recovered/Resolved]
  - Intentional self-injury [Unknown]
  - Circulatory collapse [Recovered/Resolved]
  - Respiratory depression [Recovered/Resolved]
  - Therapy non-responder [Recovered/Resolved]
